FAERS Safety Report 7703749-8 (Version None)
Quarter: 2011Q3

REPORT INFORMATION
  Report Type: 
  Country: None (occurrence: None)
  Receive Date: 20110823
  Receipt Date: 20110817
  Transmission Date: 20111222
  Serious: Yes (Life-Threatening, Hospitalization, Other)
  Sender: FDA-Public Use
  Company Number: JP-PFIZER INC-2011172568

PATIENT
  Age: 76 Year
  Sex: Male
  Weight: 51 kg

DRUGS (1)
  1. SUTENT [Suspect]
     Indication: RENAL CELL CARCINOMA
     Dosage: 25 MG, 1X/DAY
     Route: 048
     Dates: start: 20101002

REACTIONS (3)
  - INTERSTITIAL LUNG DISEASE [None]
  - NEUTROPHIL COUNT DECREASED [None]
  - PLATELET COUNT DECREASED [None]
